FAERS Safety Report 5582683-6 (Version None)
Quarter: 2008Q1

REPORT INFORMATION
  Report Type: 
  Country: None (occurrence: None)
  Receive Date: 20080107
  Receipt Date: 20071231
  Transmission Date: 20080703
  Serious: Yes (Death, Other)
  Sender: FDA-Public Use
  Company Number: SA-ELI_LILLY_AND_COMPANY-SA200801000036

PATIENT
  Sex: Male

DRUGS (2)
  1. ZYPREXA [Suspect]
     Dosage: 15 MG, UNKNOWN
     Route: 048
  2. SEROQUEL [Concomitant]
     Dosage: UNK, UNKNOWN

REACTIONS (2)
  - COMPLETED SUICIDE [None]
  - INJURY [None]
